FAERS Safety Report 6108424-1 (Version None)
Quarter: 2009Q1

REPORT INFORMATION
  Report Type: 
  Country: None (occurrence: None)
  Receive Date: 20090309
  Receipt Date: 20090225
  Transmission Date: 20090719
  Serious: Yes (Other)
  Sender: FDA-Public Use
  Company Number: US-PFIZER INC-2009176441

PATIENT
  Sex: Female
  Weight: 55.338 kg

DRUGS (2)
  1. MICRONASE [Suspect]
     Indication: DIABETES MELLITUS
  2. GLIBENCLAMIDE [Suspect]

REACTIONS (2)
  - PANCREATITIS [None]
  - WEIGHT DECREASED [None]
